FAERS Safety Report 18057783 (Version 1)
Quarter: 2020Q3

REPORT INFORMATION
  Report Type: Spontaneous
  Country: RO (occurrence: RO)
  Receive Date: 20200723
  Receipt Date: 20200723
  Transmission Date: 20201103
  Serious: Yes (Other)
  Sender: FDA-Public Use
  Company Number: RO-ROCHE-2646473

PATIENT
  Age: 63 Year
  Sex: Female

DRUGS (2)
  1. CRIZOTINIB [Concomitant]
     Active Substance: CRIZOTINIB
     Indication: LUNG ADENOCARCINOMA STAGE IV
     Dates: start: 201901
  2. ALECENSA [Suspect]
     Active Substance: ALECTINIB HYDROCHLORIDE
     Indication: LUNG ADENOCARCINOMA STAGE IV
     Route: 065
     Dates: start: 20191204

REACTIONS (5)
  - Cough [Unknown]
  - Fatigue [Unknown]
  - Metastases to lymph nodes [Unknown]
  - Hepatotoxicity [Unknown]
  - Bronchostenosis [Unknown]
